FAERS Safety Report 10540037 (Version 1)
Quarter: 2014Q4

REPORT INFORMATION
  Report Type: Spontaneous
  Country: US (occurrence: None)
  Receive Date: 20141023
  Receipt Date: 20141023
  Transmission Date: 20150529
  Serious: Yes (Life-Threatening, Hospitalization, Disabling)
  Sender: FDA-Public Use
  Company Number: None

PATIENT
  Age: 63 Year
  Sex: Female
  Weight: 79.38 kg

DRUGS (11)
  1. SEROQUEL [Concomitant]
     Active Substance: QUETIAPINE FUMARATE
  2. HYDROCODONE [Concomitant]
     Active Substance: HYDROCODONE
  3. METOPROLOL [Concomitant]
     Active Substance: METOPROLOL
  4. LOSARTAN [Concomitant]
     Active Substance: LOSARTAN
  5. ABILIFY [Suspect]
     Active Substance: ARIPIPRAZOLE
     Indication: DEPRESSION
     Dosage: 4 MG TWICE A DAY, 2 PILLS TWICE A DAY, MOUTH
     Route: 048
     Dates: start: 201309, end: 20131203
  6. DEPAKOTE [Concomitant]
     Active Substance: DIVALPROEX SODIUM
  7. ASPIRINE [Concomitant]
     Active Substance: ASPIRIN
  8. BACLOFEN. [Concomitant]
     Active Substance: BACLOFEN
  9. POTASSIUM [Concomitant]
     Active Substance: POTASSIUM
  10. XANAX [Concomitant]
     Active Substance: ALPRAZOLAM
  11. MIRTAZAPINE. [Concomitant]
     Active Substance: MIRTAZAPINE

REACTIONS (6)
  - Nightmare [None]
  - Abnormal behaviour [None]
  - Poor quality sleep [None]
  - Agitation [None]
  - Seizure [None]
  - Myocardial infarction [None]

NARRATIVE: CASE EVENT DATE: 20130913
